FAERS Safety Report 10219178 (Version 3)
Quarter: 2014Q2

REPORT INFORMATION
  Report Type: Spontaneous
  Country: JP (occurrence: JP)
  Receive Date: 20140605
  Receipt Date: 20140611
  Transmission Date: 20141212
  Serious: Yes (Hospitalization)
  Sender: FDA-Public Use
  Company Number: JP-ASTRAZENECA-2014SE36112

PATIENT
  Age: 70 Year
  Sex: Male
  Weight: 61 kg

DRUGS (15)
  1. CRESTOR [Suspect]
     Indication: DYSLIPIDAEMIA
     Route: 048
     Dates: start: 2005, end: 20140512
  2. SELARA [Suspect]
     Route: 048
     Dates: start: 2013, end: 20140512
  3. BUFFERIN [Concomitant]
     Route: 048
  4. LUPRAC [Concomitant]
     Route: 048
  5. RENIVACE [Concomitant]
     Route: 048
  6. NITOROL R [Concomitant]
     Route: 048
  7. SINGULAIR [Concomitant]
     Route: 048
  8. AZOSEMIDE [Concomitant]
     Dosage: DOSE UNKNOWN
     Route: 048
  9. AZOSEMIDE [Concomitant]
     Dosage: DIART, 60 MG DAILY
     Route: 048
  10. MAINTATE [Concomitant]
     Route: 048
  11. LASIX [Concomitant]
     Route: 048
  12. PARIET [Concomitant]
     Route: 048
  13. SIGMART [Concomitant]
     Route: 048
  14. WARFARIN [Concomitant]
     Route: 048
  15. HALCION [Concomitant]
     Dosage: DOSE UNKNOWN
     Route: 048

REACTIONS (3)
  - Pneumonia [Unknown]
  - Rhabdomyolysis [Recovered/Resolved]
  - Fall [Unknown]
